FAERS Safety Report 22083613 (Version 1)
Quarter: 2023Q1

REPORT INFORMATION
  Report Type: Spontaneous
  Country: US (occurrence: None)
  Receive Date: 20230309
  Receipt Date: 20230309
  Transmission Date: 20230418
  Serious: Yes (unspecified)
  Sender: FDA-Public Use
  Company Number: None

PATIENT
  Age: 29 Year
  Sex: Female
  Weight: 157.5 kg

DRUGS (3)
  1. ARTIFICIAL TEARS LUBRICANT EYE DROPS (CARBOXYMETHYLCELLULOSE SODIUM) [Suspect]
     Active Substance: CARBOXYMETHYLCELLULOSE SODIUM
     Dosage: OTHER QUANTITY : 1 DROP(S);?FREQUENCY : DAILY;?
     Route: 047
     Dates: start: 20221205, end: 20230308
  2. BESIVANCE [Concomitant]
     Active Substance: BESIFLOXACIN
  3. prednisolone acute [Concomitant]

REACTIONS (2)
  - Recalled product administered [None]
  - Product contamination [None]

NARRATIVE: CASE EVENT DATE: 20230220
